FAERS Safety Report 4595603-8 (Version None)
Quarter: 2005Q1

REPORT INFORMATION
  Report Type: 
  Country: None (occurrence: None)
  Receive Date: 20050224
  Receipt Date: 20050214
  Transmission Date: 20050727
  Serious: Yes (Hospitalization)
  Sender: FDA-Public Use
  Company Number: HQWYE342915FEB05

PATIENT
  Age: 46 Year
  Sex: Male
  Weight: 99.5 kg

DRUGS (10)
  1. RAPAMUNE [Suspect]
     Indication: PROPHYLAXIS AGAINST TRANSPLANT REJECTION
     Dosage: 6 MG 1X PER 1 DAY, ORAL
     Route: 048
     Dates: start: 20040728
  2. PREDNISONE [Suspect]
     Indication: PROPHYLAXIS AGAINST TRANSPLANT REJECTION
     Dosage: 7.5 MG 1X PER 1DAY, ORAL
     Route: 048
  3. SOLU-MEDROL [Suspect]
     Indication: KIDNEY TRANSPLANT REJECTION
     Dosage: 500 MG 1X PER 1 DAY, INTRAVNEOUS
     Route: 042
     Dates: start: 20050211, end: 20050211
  4. SOLU-MEDROL [Suspect]
     Dosage: 1000 MG 1X PER 1 DAY, INTRAVENOUS
     Route: 042
     Dates: start: 20050212, end: 20050213
  5. SOLU-MEDROL [Suspect]
     Dosage: 500 MG, 1X PER 1 DAY, INTRAVENOUS
     Route: 042
     Dates: start: 20050214, end: 20050214
  6. CELLCEPT [Concomitant]
  7. LOPRESSOR [Concomitant]
  8. LIPITOR [Concomitant]
  9. BACTRIM DS (SULFAMEHTOXAZOLE/TRIMETHOPRIM) [Concomitant]
  10. LASIX [Concomitant]

REACTIONS (3)
  - DRUG INEFFECTIVE [None]
  - HYPERGLYCAEMIA [None]
  - KIDNEY TRANSPLANT REJECTION [None]
